FAERS Safety Report 21988452 (Version 1)
Quarter: 2023Q1

REPORT INFORMATION
  Report Type: Spontaneous
  Country: US (occurrence: None)
  Receive Date: 20230214
  Receipt Date: 20230214
  Transmission Date: 20230418
  Serious: Yes (Hospitalization)
  Sender: FDA-Public Use
  Company Number: US-ROCHE-3281992

PATIENT
  Weight: 57 kg

DRUGS (27)
  1. TAMIFLU [Suspect]
     Active Substance: OSELTAMIVIR PHOSPHATE
     Indication: Influenza
     Route: 065
     Dates: start: 20220907
  2. SOLIRIS [Concomitant]
     Active Substance: ECULIZUMAB
     Indication: Myasthenia gravis
  3. MESTINON [Concomitant]
     Active Substance: PYRIDOSTIGMINE BROMIDE
  4. PYRIDOSTIGMINE [Concomitant]
     Active Substance: PYRIDOSTIGMINE
  5. PROVENTIL [Concomitant]
     Active Substance: ALBUTEROL
  6. ELIQUIS [Concomitant]
     Active Substance: APIXABAN
  7. BROVANA [Concomitant]
     Active Substance: ARFORMOTEROL TARTRATE
  8. ASTELIN [Concomitant]
     Active Substance: AZELASTINE HYDROCHLORIDE
  9. LOSARTAN [Concomitant]
     Active Substance: LOSARTAN
  10. VITAMIN B COMPLEX [Concomitant]
     Active Substance: CYANOCOBALAMIN\DEXPANTHENOL\NIACINAMIDE\PYRIDOXINE HYDROCHLORIDE\RIBOFLAVIN 5^-PHOSPHATE SODIUM\THIA
  11. PULMICORT TURBUHALER [Concomitant]
     Active Substance: BUDESONIDE
  12. OSCAL [Concomitant]
     Active Substance: CALCIUM CARBONATE
  13. PEPCID [Concomitant]
     Active Substance: FAMOTIDINE
  14. TAMBOCOR [Concomitant]
     Active Substance: FLECAINIDE ACETATE
  15. MUCINEX [Concomitant]
     Active Substance: GUAIFENESIN
  16. APRESOLINE HYDROCHLORIDE [Concomitant]
     Active Substance: HYDRALAZINE HYDROCHLORIDE
  17. MAGNESIUM OXIDE [Concomitant]
     Active Substance: MAGNESIUM OXIDE
  18. KLOR-CON [Concomitant]
     Active Substance: POTASSIUM CHLORIDE
  19. DELTASONE [Concomitant]
     Active Substance: PREDNISONE
  20. VITAMINS [Concomitant]
     Active Substance: VITAMINS
  21. COLACE [Concomitant]
     Active Substance: DOCUSATE SODIUM
  22. VIBRAMYCIN [Concomitant]
     Active Substance: DOXYCYCLINE
  23. BIO K PLUS [Concomitant]
  24. COZAAR [Concomitant]
     Active Substance: LOSARTAN POTASSIUM
  25. PAXIL [Concomitant]
     Active Substance: PAROXETINE HYDROCHLORIDE
  26. K-DUR [Concomitant]
     Active Substance: POTASSIUM CHLORIDE
  27. DOCUSATE SODIUM\SENNOSIDE A\SENNOSIDE B [Concomitant]
     Active Substance: DOCUSATE SODIUM\SENNOSIDE A\SENNOSIDE B

REACTIONS (15)
  - Pulmonary hypertension [Unknown]
  - Atrial fibrillation [Unknown]
  - Delirium [Recovered/Resolved]
  - Chronic left ventricular failure [Unknown]
  - Hypervolaemia [Unknown]
  - Urinary tract infection [Unknown]
  - Confusional state [Recovered/Resolved]
  - Blood creatinine increased [Recovering/Resolving]
  - Hypocalcaemia [Unknown]
  - Asthma [Not Recovered/Not Resolved]
  - Arteriosclerosis [Unknown]
  - Hypertension [Unknown]
  - Gastrooesophageal reflux disease [Unknown]
  - Cough [Unknown]
  - Rhonchi [Unknown]
